FAERS Safety Report 18208364 (Version 2)
Quarter: 2020Q3

REPORT INFORMATION
  Report Type: Report from Study
  Country: US (occurrence: US)
  Receive Date: 20200828
  Receipt Date: 20200904
  Transmission Date: 20201103
  Serious: Yes (Hospitalization)
  Sender: FDA-Public Use
  Company Number: US-JAZZ-2020-US-010633

PATIENT
  Age: 66 Year
  Sex: Male
  Weight: 77.1 kg

DRUGS (12)
  1. CYTOMEL [Concomitant]
     Active Substance: LIOTHYRONINE SODIUM
     Dosage: 7.5 MICROGRAM, QD
     Route: 048
  2. IMODIUM [Concomitant]
     Active Substance: LOPERAMIDE HYDROCHLORIDE
     Dosage: 2 MILLIGRAM, PRN
     Route: 048
  3. SYNTHROID [Concomitant]
     Active Substance: LEVOTHYROXINE SODIUM
     Dosage: 137 MICROGRAM
     Route: 048
  4. VITAMIN D3 [Concomitant]
     Active Substance: CHOLECALCIFEROL
     Dosage: 5000 INTERNATIONAL UNIT, QD
     Route: 048
  5. CPX?351 [Suspect]
     Active Substance: CYTARABINE\DAUNORUBICIN
     Indication: ACUTE MYELOID LEUKAEMIA
     Dosage: 89 MILLIGRAM ON DAYS 1, 3, 5
     Route: 042
     Dates: start: 20200702, end: 20200723
  6. ZOVIRAX ACTIVE [Concomitant]
     Dosage: 400 MILLIGRAM, BID
  7. SARNA HC [Concomitant]
     Dosage: UNK, PRN
     Route: 061
  8. PALBOCICLIB [Suspect]
     Active Substance: PALBOCICLIB
     Indication: ACUTE MYELOID LEUKAEMIA
     Dosage: 125 MILLIGRAM ON DAYS 1, 2, 4, 6
     Route: 048
     Dates: start: 20200629, end: 20200724
  9. DULCOLAX BALANCE [Concomitant]
     Active Substance: POLYETHYLENE GLYCOL 3350
     Dosage: 10 MILLIGRAM, PRN
     Route: 048
  10. ROBITUSSIN DM [Concomitant]
     Active Substance: DEXTROMETHORPHAN HYDROBROMIDE\GUAIFENESIN
     Dosage: 10 MILLILITER, PRN
     Route: 048
  11. HYDROMET [HOMATROPINE METHYLBROMIDE;HYDROCODONE BITARTRATE] [Concomitant]
     Dosage: 10 MILLILITER, PRN
     Route: 048
  12. NORVASC [Concomitant]
     Active Substance: AMLODIPINE BESYLATE
     Dosage: 10 MILLIGRAM, QD
     Route: 048

REACTIONS (1)
  - Posterior reversible encephalopathy syndrome [Unknown]

NARRATIVE: CASE EVENT DATE: 20200816
